FAERS Safety Report 4686009-1 (Version None)
Quarter: 2005Q2

REPORT INFORMATION
  Report Type: 
  Country: None (occurrence: None)
  Receive Date: 20050609
  Receipt Date: 20050520
  Transmission Date: 20051028
  Serious: Yes (Death)
  Sender: FDA-Public Use
  Company Number: AR-NOVOPROD-244325

PATIENT
  Age: 42 Year
  Sex: Female
  Weight: 70 kg

DRUGS (7)
  1. NOVOSEVEN [Suspect]
     Indication: GASTROINTESTINAL HAEMORRHAGE
     Dosage: 90 UG, BID
     Route: 042
     Dates: start: 20041017, end: 20041017
  2. COLISTIN SULFATE [Concomitant]
  3. MEROPENEM [Concomitant]
  4. OMEPRAZOLE [Concomitant]
  5. RIFAMPICIN [Concomitant]
  6. NORADRENALINE [Concomitant]
  7. DOPAMINE HCL [Concomitant]

REACTIONS (2)
  - CONCOMITANT DISEASE PROGRESSION [None]
  - MULTI-ORGAN FAILURE [None]
